FAERS Safety Report 15844937 (Version 4)
Quarter: 2019Q1

REPORT INFORMATION
  Report Type: Report from Study
  Country: US (occurrence: US)
  Receive Date: 20190119
  Receipt Date: 20190301
  Transmission Date: 20190417
  Serious: Yes (Hospitalization)
  Sender: FDA-Public Use
  Company Number: US-ACTELION-A-NJ2018-173430

PATIENT
  Age: 84 Year
  Sex: Female

DRUGS (4)
  1. UPTRAVI [Suspect]
     Active Substance: SELEXIPAG
     Dosage: 400 MCG, BID
     Route: 048
     Dates: start: 20180503
  2. UPTRAVI [Suspect]
     Active Substance: SELEXIPAG
     Dosage: 600 MCG, BID
     Route: 048
  3. UPTRAVI [Suspect]
     Active Substance: SELEXIPAG
     Dosage: 200/400MCG AM/PM
     Route: 048
  4. UPTRAVI [Suspect]
     Active Substance: SELEXIPAG
     Indication: PULMONARY ARTERIAL HYPERTENSION
     Dosage: 200 MCG, BID
     Route: 048

REACTIONS (15)
  - Urinary tract infection [Recovered/Resolved]
  - Limb injury [Unknown]
  - Feeling abnormal [Unknown]
  - Fatigue [Unknown]
  - Cardiac failure congestive [Recovered/Resolved]
  - Troponin increased [Recovered/Resolved]
  - Diarrhoea [Unknown]
  - Malaise [Unknown]
  - Limb operation [Unknown]
  - Pain [Unknown]
  - Cardiomyopathy [Recovered/Resolved]
  - Product dose omission [Unknown]
  - Bronchitis [Recovered/Resolved]
  - Headache [Unknown]
  - Dyspnoea [Unknown]

NARRATIVE: CASE EVENT DATE: 201811
